FAERS Safety Report 21878912 (Version 1)
Quarter: 2023Q1

REPORT INFORMATION
  Report Type: Spontaneous
  Country: CA (occurrence: None)
  Receive Date: 20230118
  Receipt Date: 20230118
  Transmission Date: 20230418
  Serious: Yes (Other)
  Sender: FDA-Public Use
  Company Number: 2021A187902

PATIENT
  Age: 53 Year
  Sex: Female

DRUGS (2)
  1. FULVESTRANT [Suspect]
     Active Substance: FULVESTRANT
     Indication: PIK3CA-activated mutation
     Route: 048
     Dates: start: 20210207
  2. FULVESTRANT [Suspect]
     Active Substance: FULVESTRANT
     Indication: PIK3CA-activated mutation
     Route: 065

REACTIONS (1)
  - Tumour marker increased [Unknown]
